FAERS Safety Report 17739530 (Version 8)
Quarter: 2021Q2

REPORT INFORMATION
  Report Type: Spontaneous
  Country: US (occurrence: US)
  Receive Date: 20200504
  Receipt Date: 20210527
  Transmission Date: 20210716
  Serious: Yes (Hospitalization)
  Sender: FDA-Public Use
  Company Number: US-CELLTRION INC.-2020US019438

PATIENT

DRUGS (4)
  1. INFLECTRA [Suspect]
     Active Substance: INFLIXIMAB-DYYB
     Indication: ARTHRITIS
     Dosage: UNK
     Route: 065
     Dates: start: 20200218
  2. INFLECTRA [Suspect]
     Active Substance: INFLIXIMAB-DYYB
     Dosage: UNK, CYCLIC (DOSAGE UNKNOWN INFUSION EVERY EIGHT WEEKS)
     Route: 065
  3. INFLECTRA [Suspect]
     Active Substance: INFLIXIMAB-DYYB
     Dosage: 8MG/KG OR 750MG IV EVERY 8 WEEKS
     Route: 042
     Dates: start: 202101
  4. INFLECTRA [Suspect]
     Active Substance: INFLIXIMAB-DYYB
     Indication: RHEUMATOID ARTHRITIS
     Dosage: UNK, CYCLIC (6 VIALS; 100 MG VIA INFUSION EVERY 8 WEEKS)
     Route: 065

REACTIONS (6)
  - Malaise [Unknown]
  - Treatment delayed [Unknown]
  - Condition aggravated [Unknown]
  - Overdose [Unknown]
  - Product dose omission issue [Unknown]
  - Weight increased [Unknown]
